FAERS Safety Report 4835751-8 (Version None)
Quarter: 2005Q4

REPORT INFORMATION
  Report Type: 
  Country: None (occurrence: None)
  Receive Date: 20051118
  Receipt Date: 20051110
  Transmission Date: 20060501
  Serious: Yes (Other)
  Sender: FDA-Public Use
  Company Number: 2005154218

PATIENT
  Age: 52 Year
  Sex: Female

DRUGS (4)
  1. NORVASC [Suspect]
     Indication: OESOPHAGEAL SPASM
     Dosage: 2.5 (2.5 MG, 1 IN 1 Y)
     Dates: start: 20050506
  2. PROTONIX [Concomitant]
  3. WARFARIN SODIUM [Concomitant]
  4. LOVENOX [Concomitant]

REACTIONS (10)
  - AMNESIA [None]
  - CYST [None]
  - DEEP VEIN THROMBOSIS [None]
  - DIZZINESS [None]
  - DYSARTHRIA [None]
  - HEART RATE ABNORMAL [None]
  - HYPERTENSION [None]
  - TREMOR [None]
  - VENTRICULAR EXTRASYSTOLES [None]
  - WEIGHT INCREASED [None]
